FAERS Safety Report 8838547 (Version 1)
Quarter: 2012Q4

REPORT INFORMATION
  Report Type: 
  Country: US (occurrence: US)
  Receive Date: 20121012
  Receipt Date: 20121012
  Transmission Date: 20130627
  Serious: Yes (Hospitalization, Other)
  Sender: FDA-Public Use
  Company Number: US-ELI_LILLY_AND_COMPANY-US201210001939

PATIENT
  Sex: Male

DRUGS (3)
  1. HUMULIN REGULAR [Suspect]
     Indication: DIABETES MELLITUS
     Dosage: 7 u, bid
  2. HUMULIN NPH [Suspect]
     Indication: DIABETES MELLITUS
     Dosage: UNK, unknown
  3. INSULIN [Concomitant]
     Indication: DIABETES MELLITUS
     Dosage: UNK, unknown

REACTIONS (4)
  - Spinal fracture [Unknown]
  - Loss of consciousness [Unknown]
  - Hospitalisation [Unknown]
  - Drug dose omission [Not Recovered/Not Resolved]
